FAERS Safety Report 11896806 (Version 2)
Quarter: 2016Q1

REPORT INFORMATION
  Report Type: Report from Study
  Country: CA (occurrence: CA)
  Receive Date: 20160107
  Receipt Date: 20160203
  Transmission Date: 20160526
  Serious: Yes (Hospitalization, Other)
  Sender: FDA-Public Use
  Company Number: CA-ABBVIE-15K-028-1518675-00

PATIENT
  Age: 45 Year
  Sex: Female

DRUGS (2)
  1. HUMIRA [Suspect]
     Active Substance: ADALIMUMAB
     Route: 058
     Dates: start: 20151124, end: 20160108
  2. HUMIRA [Suspect]
     Active Substance: ADALIMUMAB
     Indication: CROHN^S DISEASE
     Route: 058
     Dates: start: 20150910, end: 20151008

REACTIONS (8)
  - Nasopharyngitis [Not Recovered/Not Resolved]
  - Intestinal fistula [Unknown]
  - Intestinal resection [Unknown]
  - Ileostomy [Unknown]
  - Stoma site cellulitis [Recovered/Resolved]
  - Stoma site cellulitis [Recovered/Resolved]
  - Crohn^s disease [Recovered/Resolved]
  - Blood pH increased [Unknown]

NARRATIVE: CASE EVENT DATE: 20151008
